FAERS Safety Report 10424119 (Version 1)
Quarter: 2014Q3

REPORT INFORMATION
  Report Type: Spontaneous
  Country: US (occurrence: None)
  Receive Date: 20140722
  Receipt Date: 20140722
  Transmission Date: 20150326
  Serious: No
  Sender: FDA-Public Use
  Company Number: AEGR000435

PATIENT
  Age: 57 Year
  Sex: Male
  Weight: 73.9 kg

DRUGS (10)
  1. PROVENTIL (SALBUTAMOL) [Concomitant]
  2. SINGULAIR (MONTELUKAST SODIUM) [Concomitant]
  3. NIFEDIPINE (NIFEDIPINE) [Concomitant]
  4. JUXTAPID [Suspect]
     Active Substance: LOMITAPIDE MESYLATE
     Indication: TYPE IIA HYPERLIPIDAEMIA
     Route: 048
     Dates: start: 20140326
  5. FLEXERIL [Concomitant]
     Active Substance: CYCLOBENZAPRINE HYDROCHLORIDE
  6. OMEGA 3 FISH OIL (FISH OIL) [Concomitant]
     Active Substance: OMEGA-3 FATTY ACIDS
  7. NITROSTAT (GLYCERYL TRINITRATE) [Concomitant]
  8. LYRICA [Concomitant]
     Active Substance: PREGABALIN
  9. TEMOVATE (CLOBETASOL PROPIONATE) [Concomitant]
  10. SYMBICORT [Concomitant]
     Active Substance: BUDESONIDE\FORMOTEROL FUMARATE DIHYDRATE

REACTIONS (1)
  - Rash [None]

NARRATIVE: CASE EVENT DATE: 20140422
